FAERS Safety Report 6686273-3 (Version None)
Quarter: 2010Q2

REPORT INFORMATION
  Report Type: 
  Country: None (occurrence: None)
  Receive Date: 20100419
  Receipt Date: 20100408
  Transmission Date: 20101027
  Serious: Yes (Other)
  Sender: FDA-Public Use
  Company Number: US-WYE-H14527610

PATIENT
  Sex: Female
  Weight: 52.66 kg

DRUGS (3)
  1. PREMPRO [Suspect]
     Indication: PREMATURE MENOPAUSE
     Route: 065
     Dates: start: 19960101
  2. PREMPRO [Suspect]
     Indication: MENTAL DISORDER
     Route: 065
     Dates: start: 20090401, end: 20100301
  3. PREMPRO [Suspect]
     Dates: start: 20100301

REACTIONS (2)
  - DEAFNESS [None]
  - TINNITUS [None]
